FAERS Safety Report 7284536-4 (Version None)
Quarter: 2011Q1

REPORT INFORMATION
  Report Type: 
  Country: None (occurrence: None)
  Receive Date: 20110209
  Receipt Date: 20110204
  Transmission Date: 20110831
  Serious: Yes (Death, Hospitalization)
  Sender: FDA-Public Use
  Company Number: AR-BRISTOL-MYERS SQUIBB COMPANY-15531270

PATIENT
  Age: 57 Year
  Sex: Female

DRUGS (1)
  1. IXEMPRA KIT [Suspect]
     Indication: BREAST CANCER
     Dates: start: 20100107

REACTIONS (3)
  - CARDIAC FAILURE [None]
  - FEBRILE NEUTROPENIA [None]
  - SEPSIS [None]
